FAERS Safety Report 4636316-3 (Version None)
Quarter: 2005Q2

REPORT INFORMATION
  Report Type: 
  Country: None (occurrence: None)
  Receive Date: 20050415
  Receipt Date: 20040910
  Transmission Date: 20051028
  Serious: No
  Sender: FDA-Public Use
  Company Number: US-BRISTOL-MYERS SQUIBB COMPANY-12700464

PATIENT
  Sex: Female
  Weight: 76 kg

DRUGS (12)
  1. PARAPLATIN [Suspect]
     Indication: OVARIAN CANCER METASTATIC
     Dosage: CYCLE 1: 11-AUG-2004
     Route: 042
     Dates: start: 20040831, end: 20040831
  2. ALOXI [Concomitant]
     Indication: PREMEDICATION
     Dates: start: 20040831, end: 20040831
  3. DECADRON [Concomitant]
     Indication: PREMEDICATION
     Dates: start: 20040831, end: 20040831
  4. TAXOTERE [Concomitant]
     Dates: start: 20040831, end: 20040831
  5. LIPITOR [Concomitant]
  6. ASPIRIN [Concomitant]
  7. TOPROL-XL [Concomitant]
  8. ARIMIDEX [Concomitant]
  9. COUMADIN [Concomitant]
  10. VITAMIN B COMPLEX CAP [Concomitant]
  11. GLUCOSAMINE [Concomitant]
  12. HERBAL PREPARATION [Concomitant]

REACTIONS (1)
  - HYPERSENSITIVITY [None]
